FAERS Safety Report 5320846-5 (Version None)
Quarter: 2007Q2

REPORT INFORMATION
  Report Type: 
  Country: None (occurrence: None)
  Receive Date: 20070502
  Receipt Date: 20070326
  Transmission Date: 20071010
  Serious: Yes (Disabling)
  Sender: FDA-Public Use
  Company Number: SP01186

PATIENT
  Age: 53 Year
  Sex: Male
  Weight: 110.6777 kg

DRUGS (3)
  1. MOVIPREP [Suspect]
     Indication: COLONOSCOPY
     Dosage: 1 LIT, ORAL
     Route: 048
     Dates: start: 20070325, end: 20070325
  2. PROMETHAZINE [Concomitant]
  3. DIOVAN [Concomitant]

REACTIONS (1)
  - HYPERSENSITIVITY [None]
